FAERS Safety Report 12986407 (Version 1)
Quarter: 2016Q4

REPORT INFORMATION
  Report Type: Spontaneous
  Country: US (occurrence: US)
  Receive Date: 20161130
  Receipt Date: 20161130
  Transmission Date: 20170207
  Serious: No
  Sender: FDA-Public Use
  Company Number: US-MYLANLABS-2016M1016690

PATIENT
  Age: 46 Year
  Weight: 70.3 kg

DRUGS (2)
  1. ROPINIROLE EXTENDED-RELEASE TABLETS [Suspect]
     Active Substance: ROPINIROLE
     Indication: OFF LABEL USE
  2. ROPINIROLE EXTENDED-RELEASE TABLETS [Suspect]
     Active Substance: ROPINIROLE
     Indication: RESTLESS LEGS SYNDROME
     Dosage: 4 MG, QD
     Dates: start: 20160104, end: 20160104

REACTIONS (4)
  - Drug ineffective for unapproved indication [Recovered/Resolved]
  - Dizziness [Recovered/Resolved]
  - Nausea [Recovered/Resolved]
  - Reaction to drug excipients [Recovered/Resolved]

NARRATIVE: CASE EVENT DATE: 20160104
